FAERS Safety Report 23787945 (Version 1)
Quarter: 2024Q2

REPORT INFORMATION
  Report Type: Spontaneous
  Country: IT (occurrence: IT)
  Receive Date: 20240426
  Receipt Date: 20240426
  Transmission Date: 20240716
  Serious: Yes (Hospitalization, Other)
  Sender: FDA-Public Use
  Company Number: None

PATIENT
  Sex: Female

DRUGS (3)
  1. MIRTAZAPINE [Suspect]
     Active Substance: MIRTAZAPINE
     Indication: Incorrect dosage administered
     Dosage: 2 DOSAGE FORM
     Route: 048
     Dates: start: 20240410, end: 20240410
  2. TAVOR (LORAZEPAM) [Suspect]
     Active Substance: LORAZEPAM
     Indication: Incorrect dosage administered
     Dosage: 2 DOSAGE FORM
     Route: 048
     Dates: start: 20240410, end: 20240410
  3. HALOPERIDOL [Suspect]
     Active Substance: HALOPERIDOL
     Indication: Overdose
     Dosage: DOSE REPORTED: 1 BOTTLE
     Route: 048
     Dates: start: 20240410, end: 20240410

REACTIONS (4)
  - Sopor [Not Recovered/Not Resolved]
  - Somnolence [Not Recovered/Not Resolved]
  - Overdose [Not Recovered/Not Resolved]
  - Product administration error [Not Recovered/Not Resolved]

NARRATIVE: CASE EVENT DATE: 20240410
